FAERS Safety Report 12693425 (Version 1)
Quarter: 2016Q3

REPORT INFORMATION
  Report Type: Spontaneous
  Country: US (occurrence: None)
  Receive Date: 20160826
  Receipt Date: 20160826
  Transmission Date: 20161109
  Serious: Yes (Hospitalization)
  Sender: FDA-Public Use
  Company Number: None

PATIENT
  Age: 58 Year
  Sex: Male
  Weight: 86.64 kg

DRUGS (2)
  1. BYDUREON [Suspect]
     Active Substance: EXENATIDE
     Indication: TYPE 2 DIABETES MELLITUS
     Route: 058
     Dates: start: 20140224, end: 20160816
  2. METFORMIN [Concomitant]
     Active Substance: METFORMIN HYDROCHLORIDE

REACTIONS (9)
  - Nausea [None]
  - Dialysis [None]
  - Muscle spasms [None]
  - Hyperkalaemia [None]
  - Electrocardiogram T wave peaked [None]
  - Renal failure [None]
  - Abdominal pain [None]
  - Pancreatitis [None]
  - Vomiting [None]

NARRATIVE: CASE EVENT DATE: 20160816
